FAERS Safety Report 17975389 (Version 5)
Quarter: 2022Q1

REPORT INFORMATION
  Report Type: Report from Study
  Country: US (occurrence: US)
  Receive Date: 20200702
  Receipt Date: 20220206
  Transmission Date: 20220424
  Serious: No
  Sender: FDA-Public Use
  Company Number: None

PATIENT
  Age: 53 Year
  Sex: Female

DRUGS (1)
  1. COSENTYX [Suspect]
     Active Substance: SECUKINUMAB
     Indication: Psoriatic arthropathy
     Dosage: UNK UNK, OTHER (EVERY WEEK X 5 WEEKS THEN EVERY 4 WEEKS)
     Route: 058

REACTIONS (5)
  - Product dose omission issue [Unknown]
  - Inappropriate schedule of product administration [Unknown]
  - COVID-19 [Recovering/Resolving]
  - Pain of skin [Unknown]
  - Psoriasis [Unknown]

NARRATIVE: CASE EVENT DATE: 20200630
